FAERS Safety Report 23030967 (Version 2)
Quarter: 2023Q4

REPORT INFORMATION
  Report Type: Report from Study
  Country: US (occurrence: US)
  Receive Date: 20231005
  Receipt Date: 20231025
  Transmission Date: 20240110
  Serious: Yes (Hospitalization, Other)
  Sender: FDA-Public Use
  Company Number: US-UCBSA-2023047667

PATIENT
  Age: 72 Year
  Sex: Male

DRUGS (11)
  1. KEPPRA XR [Suspect]
     Active Substance: LEVETIRACETAM
     Indication: Product used for unknown indication
     Dosage: 750 MILLIGRAM, 2X/DAY (BID)
  2. KEPPRA XR [Suspect]
     Active Substance: LEVETIRACETAM
     Dosage: 750 MILLIGRAM, ONCE DAILY (QD)
  3. KEPPRA XR [Suspect]
     Active Substance: LEVETIRACETAM
     Dosage: 375 MILLIGRAM, 2X/DAY (BID)
  4. KEPPRA XR [Suspect]
     Active Substance: LEVETIRACETAM
     Dosage: HALF A PILL  2X/DAY (BID)
  5. KEPPRA XR [Suspect]
     Active Substance: LEVETIRACETAM
     Dosage: 375 MILLIGRAM, ONCE DAILY (QD)
     Dates: end: 20230921
  6. BRIVARACETAM [Suspect]
     Active Substance: BRIVARACETAM
     Indication: Seizure
     Dosage: 250 MILLIGRAM,UNK
     Route: 042
     Dates: start: 20230925, end: 2023
  7. BRIVARACETAM [Suspect]
     Active Substance: BRIVARACETAM
     Dosage: 50 MILLIGRAM, 2X/DAY (BID)
     Route: 042
     Dates: start: 2023
  8. BRIVIACT [Suspect]
     Active Substance: BRIVARACETAM
     Indication: Seizure
     Dosage: 50 MILLIGRAM, 2X/DAY (BID)
  9. HALDOL [Suspect]
     Active Substance: HALOPERIDOL
     Indication: Seizure
     Dosage: UNK
     Dates: start: 20230925
  10. LACOSAMIDE [Concomitant]
     Active Substance: LACOSAMIDE
     Indication: Product used for unknown indication
     Dosage: 100 MILLIGRAM
     Route: 042
  11. LACOSAMIDE [Concomitant]
     Active Substance: LACOSAMIDE
     Dosage: 300 MILLIGRAM, 3X/DAY (TID)

REACTIONS (7)
  - Seizure [Not Recovered/Not Resolved]
  - Fall [Not Recovered/Not Resolved]
  - Wrist fracture [Not Recovered/Not Resolved]
  - Adverse event [Not Recovered/Not Resolved]
  - Product use issue [Unknown]
  - Off label use [Unknown]
  - Wrong technique in product usage process [Unknown]

NARRATIVE: CASE EVENT DATE: 20230924
